FAERS Safety Report 15080113 (Version 1)
Quarter: 2018Q2

REPORT INFORMATION
  Report Type: Spontaneous
  Country: TH (occurrence: TH)
  Receive Date: 20180627
  Receipt Date: 20180627
  Transmission Date: 20180711
  Serious: Yes (Death)
  Sender: FDA-Public Use
  Company Number: PHHY2018TH029998

PATIENT
  Age: 69 Year
  Sex: Female

DRUGS (4)
  1. ZOMETA [Suspect]
     Active Substance: ZOLEDRONIC ACID
     Indication: PRODUCT USED FOR UNKNOWN INDICATION
     Dosage: 4 MG, UNK
     Route: 042
     Dates: start: 20160315, end: 20160706
  2. ZOMETA [Suspect]
     Active Substance: ZOLEDRONIC ACID
     Dosage: 3 MG, UNK
     Route: 042
  3. AFINITOR [Suspect]
     Active Substance: EVEROLIMUS
     Indication: PRODUCT USED FOR UNKNOWN INDICATION
     Dosage: 10 MG, QD
     Route: 065
     Dates: start: 20160315
  4. EXEMESTANE. [Concomitant]
     Active Substance: EXEMESTANE
     Indication: PRODUCT USED FOR UNKNOWN INDICATION
     Dosage: 25 MG, QD
     Route: 065
     Dates: start: 20160315

REACTIONS (17)
  - Dysphagia [Fatal]
  - Metastases to bone [Fatal]
  - Pleural effusion [Fatal]
  - Thyroid mass [Fatal]
  - Eastern Cooperative Oncology Group performance status [Fatal]
  - Disease progression [Fatal]
  - Pancreatic duct dilatation [Fatal]
  - Metastases to the mediastinum [Fatal]
  - Lymphadenopathy [Fatal]
  - Creatinine renal clearance decreased [Fatal]
  - Metastases to lung [Fatal]
  - Blood creatinine increased [Fatal]
  - Intraductal papillary mucinous neoplasm [Fatal]
  - Oral pain [Fatal]
  - Metastases to liver [Fatal]
  - Metastases to lymph nodes [Fatal]
  - Oropharyngeal pain [Fatal]

NARRATIVE: CASE EVENT DATE: 20160411
